FAERS Safety Report 4813235-0 (Version None)
Quarter: 2005Q4

REPORT INFORMATION
  Report Type: 
  Country: None (occurrence: None)
  Receive Date: 20051028
  Receipt Date: 20050414
  Transmission Date: 20060501
  Serious: No
  Sender: FDA-Public Use
  Company Number: US-GLAXOSMITHKLINE-A0554220A

PATIENT
  Age: 72 Year
  Sex: Female

DRUGS (7)
  1. ADVAIR DISKUS 100/50 [Suspect]
     Indication: ASTHMA
     Dosage: 250MCG TWICE PER DAY
     Route: 055
     Dates: start: 20040101
  2. NORVASC [Concomitant]
  3. OXYBUTYNIN [Concomitant]
  4. TRIAMTERENE [Concomitant]
  5. LIPITOR [Concomitant]
  6. AMOXICILLIN [Concomitant]
  7. PREDNISONE [Concomitant]

REACTIONS (2)
  - NAIL DISORDER [None]
  - SKIN EXFOLIATION [None]
